FAERS Safety Report 4488390-5 (Version None)
Quarter: 2004Q4

REPORT INFORMATION
  Report Type: 
  Country: None (occurrence: None)
  Receive Date: 20041026
  Receipt Date: 20041011
  Transmission Date: 20050328
  Serious: Yes (Hospitalization)
  Sender: FDA-Public Use
  Company Number: 206152

PATIENT
  Age: 45 Year
  Sex: Female
  Weight: 138.3471 kg

DRUGS (6)
  1. AVONEX [Suspect]
     Indication: MULTIPLE SCLEROSIS
     Dosage: 30 MCG QW IM
     Route: 030
     Dates: start: 19980101, end: 20030801
  2. AVONEX [Suspect]
     Indication: MULTIPLE SCLEROSIS
     Dosage: 30 MCG QW IM
     Route: 030
     Dates: start: 20030801, end: 20040401
  3. TENORMIN [Concomitant]
  4. PAMELOR [Concomitant]
  5. OXYCONTIN [Concomitant]
  6. PERCOCET [Concomitant]

REACTIONS (4)
  - ARTHRALGIA [None]
  - CEREBROVASCULAR ACCIDENT [None]
  - PAIN [None]
  - PAIN IN EXTREMITY [None]
